FAERS Safety Report 25111472 (Version 1)
Quarter: 2025Q1

REPORT INFORMATION
  Report Type: Report from Study
  Country: CA (occurrence: None)
  Receive Date: 20250324
  Receipt Date: 20250324
  Transmission Date: 20250409
  Serious: Yes (Other)
  Sender: ORION
  Company Number: CA-PFIZER INC-202500060112

PATIENT
  Age: 62 Year
  Sex: Female

DRUGS (6)
  1. METHOTREXATE [Suspect]
     Active Substance: METHOTREXATE
     Indication: Product used for unknown indication
  2. ACTEMRA [Suspect]
     Active Substance: TOCILIZUMAB
     Indication: Rheumatoid arthritis
  3. ACTEMRA [Suspect]
     Active Substance: TOCILIZUMAB
     Indication: Rheumatoid arthritis
  4. BIOTIN [Concomitant]
     Active Substance: BIOTIN
  5. HYDROXYCHLOROQUINE SULFATE [Concomitant]
     Active Substance: HYDROXYCHLOROQUINE SULFATE
  6. VITAMIN B12 [Concomitant]
     Active Substance: CYANOCOBALAMIN

REACTIONS (11)
  - Arthralgia [Unknown]
  - Arthropathy [Unknown]
  - Balance disorder [Unknown]
  - Clumsiness [Unknown]
  - Contusion [Unknown]
  - Fall [Unknown]
  - Headache [Unknown]
  - Joint injury [Unknown]
  - Noninfective encephalitis [Unknown]
  - Pain in extremity [Unknown]
  - Rheumatoid arthritis [Unknown]
